FAERS Safety Report 18734055 (Version 2)
Quarter: 2021Q1

REPORT INFORMATION
  Report Type: Other
  Country: US (occurrence: US)
  Receive Date: 20210113
  Receipt Date: 20210203
  Transmission Date: 20210419
  Serious: Yes (Other)
  Sender: FDA-Public Use
  Company Number: US-ROCHE-2742926

PATIENT
  Sex: Female

DRUGS (20)
  1. GAZYVA [Suspect]
     Active Substance: OBINUTUZUMAB
     Indication: B-CELL LYMPHOMA
     Dosage: 25 MG/ML
     Route: 042
     Dates: start: 20201112
  2. METOCLOPRAMIDE HCL [Concomitant]
     Active Substance: METOCLOPRAMIDE HYDROCHLORIDE
     Dosage: 5 MG/ML INJECTION SOLUTION
  3. MINOCYCLINE HCL [Concomitant]
     Active Substance: MINOCYCLINE HYDROCHLORIDE
     Dosage: TAKE 1 CAPSULE (100 MG) BY MOUTH TWO TIMES DAILY
     Route: 048
  4. ALINIA [Concomitant]
     Active Substance: NITAZOXANIDE
     Dosage: TAKE 1 TABLET (500 MG) BY MOUTH EVERY 12 HOURS WITH FOOD
     Route: 048
     Dates: start: 20201106
  5. LASIX [Concomitant]
     Active Substance: FUROSEMIDE
     Dosage: 20 MG ORAL TABLET TAKE 2 TABLETS (40 MG) BY MOUTH DAILY IN THE MORNING
     Route: 048
     Dates: start: 20201202, end: 20201216
  6. SPIRONOLACTONE. [Concomitant]
     Active Substance: SPIRONOLACTONE
     Route: 048
     Dates: start: 20201216
  7. METFORMIN HCL [Concomitant]
     Active Substance: METFORMIN HYDROCHLORIDE
     Dosage: 2 TABLETS (1000 MG ) BY MOUTH DAILY WITH EVENING MEAL
     Route: 048
     Dates: start: 20210111
  8. NP THYROID [Concomitant]
     Active Substance: LEVOTHYROXINE\LIOTHYRONINE
     Route: 048
  9. VALTREX [Concomitant]
     Active Substance: VALACYCLOVIR HYDROCHLORIDE
     Route: 048
  10. ONDANSETRON [Concomitant]
     Active Substance: ONDANSETRON
     Dosage: PLACE 1 TABLET (8 MG) ON THE TONGUE AND ALLOW TO DISSOLVE EVERY 8 HOURS AS NEEDED
     Route: 048
     Dates: start: 20201202
  11. NP THYROID [Concomitant]
     Active Substance: LEVOTHYROXINE\LIOTHYRONINE
     Dosage: TAKE 3 TABLETS 2X A DAY
     Route: 048
     Dates: start: 20201216
  12. CYCLOPHOSPHAMIDE. [Concomitant]
     Active Substance: CYCLOPHOSPHAMIDE
     Route: 048
     Dates: start: 20210122
  13. RITUXAN [Suspect]
     Active Substance: RITUXIMAB
     Indication: PRODUCT USED FOR UNKNOWN INDICATION
     Route: 065
  14. NPLATE [Suspect]
     Active Substance: ROMIPLOSTIM
     Indication: PRODUCT USED FOR UNKNOWN INDICATION
     Route: 065
  15. EDTA [Concomitant]
     Active Substance: EDETIC ACID
     Dates: start: 20201120, end: 20201214
  16. VENCLEXTA [Suspect]
     Active Substance: VENETOCLAX
     Indication: B-CELL LYMPHOMA
     Dosage: TAKE 2 TABLET(S) BY MOUTH DAILY
     Route: 048
  17. DMSA [Concomitant]
     Active Substance: SUCCIMER
     Dates: start: 20201120, end: 20201214
  18. METHYLENE BLUE. [Concomitant]
     Active Substance: METHYLENE BLUE
     Dates: start: 20210112
  19. KEYTRUDA [Concomitant]
     Active Substance: PEMBROLIZUMAB
     Dosage: 400 MG INTRAVENOUSLY EVERY 6 WEEKS
     Route: 042
  20. DEXAMETHASONE. [Concomitant]
     Active Substance: DEXAMETHASONE
     Dosage: ORAL TABLET TAKE ONE TABLET DAILY ON MONDAY AND THURSDAYS
     Route: 048
     Dates: start: 20210112

REACTIONS (10)
  - Nasal congestion [Unknown]
  - Gastrointestinal disorder [Recovering/Resolving]
  - Hypotension [Unknown]
  - Headache [Unknown]
  - Pruritus [Unknown]
  - Bradycardia [Unknown]
  - Fatigue [Unknown]
  - Feeling abnormal [Unknown]
  - Off label use [Unknown]
  - Intentional product use issue [Unknown]
